FAERS Safety Report 18933221 (Version 1)
Quarter: 2021Q1

REPORT INFORMATION
  Report Type: Spontaneous
  Country: US (occurrence: US)
  Receive Date: 20210223
  Receipt Date: 20210223
  Transmission Date: 20210420
  Serious: No
  Sender: FDA-Public Use
  Company Number: None

PATIENT
  Age: 6 Year
  Sex: Male

DRUGS (12)
  1. TOBRAMYCIN 300MG/4ML [Suspect]
     Active Substance: TOBRAMYCIN
     Indication: CYSTIC FIBROSIS
     Dosage: ?          OTHER DOSE:1MG/1ML;?
     Route: 055
     Dates: start: 20210125
  2. PREVACID [Concomitant]
     Active Substance: LANSOPRAZOLE
  3. LEVOCARTININ [Concomitant]
  4. FELBAMATE. [Concomitant]
     Active Substance: FELBAMATE
  5. MELATONIN [Concomitant]
     Active Substance: MELATONIN
  6. BUDESO [Concomitant]
  7. GAPABENTIN [Concomitant]
  8. CLOBAZAN [Concomitant]
     Active Substance: CLOBAZAM
  9. PULMOZYME [Suspect]
     Active Substance: DORNASE ALFA
     Indication: CYSTIC FIBROSIS
     Dosage: 300MG/4L BID INHALATION
     Route: 055
     Dates: start: 20210122
  10. EPIDIOLEX [Concomitant]
     Active Substance: CANNABIDIOL
  11. HYPERSAL [Concomitant]
     Active Substance: SODIUM CHLORIDE
  12. ALBUTEROL. [Concomitant]
     Active Substance: ALBUTEROL

REACTIONS (1)
  - Pneumonia [None]
